FAERS Safety Report 8201016-X (Version None)
Quarter: 2012Q1

REPORT INFORMATION
  Report Type: 
  Country: None (occurrence: None)
  Receive Date: 20120228
  Receipt Date: 20111123
  Transmission Date: 20120608
  Serious: Yes (Other)
  Sender: FDA-Public Use
  Company Number: 20110030381

PATIENT
  Age: 66 Year
  Sex: Female

DRUGS (7)
  1. PRIVIGEN [Suspect]
     Indication: OFF LABEL USE
     Dosage: INTRAVENOUS (NOT OTHERWISE SPECIFIED)
     Route: 042
     Dates: start: 20111024, end: 20111024
  2. PRIVIGEN [Suspect]
     Indication: DEMYELINATING POLYNEUROPATHY
     Dosage: INTRAVENOUS (NOT OTHERWISE SPECIFIED)
     Route: 042
     Dates: start: 20111024, end: 20111024
  3. PRIVIGEN [Suspect]
     Indication: OFF LABEL USE
     Dosage: INTRAVENOUS (NOT OTHERWISE SPECIFIED)
     Route: 042
     Dates: start: 20111026
  4. PRIVIGEN [Suspect]
     Indication: DEMYELINATING POLYNEUROPATHY
     Dosage: INTRAVENOUS (NOT OTHERWISE SPECIFIED)
     Route: 042
     Dates: start: 20111026
  5. PRIVIGEN [Suspect]
  6. PRIVIGEN [Suspect]
  7. PRIVIGEN [Suspect]

REACTIONS (3)
  - ANAEMIA [None]
  - OFF LABEL USE [None]
  - HAEMOLYSIS [None]
